FAERS Safety Report 13918847 (Version 1)
Quarter: 2017Q3

REPORT INFORMATION
  Report Type: Spontaneous
  Country: US (occurrence: US)
  Receive Date: 20170830
  Receipt Date: 20170830
  Transmission Date: 20171127
  Serious: Yes (Hospitalization, Other)
  Sender: FDA-Public Use
  Company Number: US-APOTEX-2017AP017028

PATIENT
  Age: 27 Year
  Sex: Female

DRUGS (10)
  1. METFORMIN HYDROCHLORIDE. [Suspect]
     Active Substance: METFORMIN HYDROCHLORIDE
     Indication: TYPE 2 DIABETES MELLITUS
     Dosage: 1000 MG, TID
     Route: 065
  2. NPH INSULIN [Suspect]
     Active Substance: INSULIN BEEF
     Dosage: 50 IU, Q.H.S.
     Route: 058
  3. NPH INSULIN [Suspect]
     Active Substance: INSULIN BEEF
     Dosage: 220 IU, Q.AM
     Route: 058
  4. INSULIN ASPART [Suspect]
     Active Substance: INSULIN ASPART
     Dosage: 20 UNITS, PRE SNACK
     Route: 058
  5. INSULIN [Suspect]
     Active Substance: INSULIN NOS
     Indication: TYPE 2 DIABETES MELLITUS
     Dosage: 0.66 ML, PREMEALS
     Route: 058
  6. INSULIN ASPART [Suspect]
     Active Substance: INSULIN ASPART
     Dosage: 85, 100 AND 115 UNITS, PRE MEAL
     Route: 058
  7. GLYBURIDE. [Suspect]
     Active Substance: GLYBURIDE
     Indication: TYPE 2 DIABETES MELLITUS
     Dosage: 5 MG, DAILY
     Route: 065
  8. NPH INSULIN [Suspect]
     Active Substance: INSULIN BEEF
     Indication: TYPE 2 DIABETES MELLITUS
     Dosage: 40 IU, Q.AM
     Route: 058
  9. INSULIN ASPART [Suspect]
     Active Substance: INSULIN ASPART
     Indication: TYPE 2 DIABETES MELLITUS
     Dosage: IMMEDIATELY BEFORE EATING
     Route: 058
  10. NPH INSULIN [Suspect]
     Active Substance: INSULIN BEEF
     Dosage: 110 IU, Q.H.S.
     Route: 058

REACTIONS (5)
  - Foetal growth restriction [Unknown]
  - Treatment noncompliance [Unknown]
  - Exposure during pregnancy [Unknown]
  - Amniotic fluid index decreased [Unknown]
  - Insulin resistance [Unknown]
